FAERS Safety Report 9121083 (Version 2)
Quarter: 2013Q2

REPORT INFORMATION
  Report Type: Spontaneous
  Country: JP (occurrence: JP)
  Receive Date: 20130226
  Receipt Date: 20130402
  Transmission Date: 20140414
  Serious: Yes (Life-Threatening, Hospitalization)
  Sender: FDA-Public Use
  Company Number: JP-009507513-1302JPN010196

PATIENT
  Age: 64 Year
  Sex: Female
  Weight: 55 kg

DRUGS (4)
  1. REBETOL [Suspect]
     Indication: CHRONIC HEPATITIS C
     Dosage: 600 MG, DIVIDED DOSE,200 MG AM,400 MG PM
     Route: 048
     Dates: start: 20120820, end: 20120821
  2. FERON [Suspect]
     Indication: CHRONIC HEPATITIS C
     Dosage: 600 UNDER 1000 UNITS, ONCE A DAY
     Route: 041
     Dates: start: 20120820, end: 20120821
  3. DEPROMEL [Concomitant]
     Dosage: 50 MG, BID
     Route: 048
     Dates: start: 2000
  4. SOLANAX [Concomitant]
     Dosage: 0.4 MG, QD
     Route: 048
     Dates: start: 2000

REACTIONS (3)
  - Renal failure acute [Recovered/Resolved]
  - Carditis [Recovered/Resolved]
  - Pyrexia [Recovered/Resolved]
